FAERS Safety Report 12351317 (Version 4)
Quarter: 2016Q3

REPORT INFORMATION
  Report Type: Report from Study
  Country: US (occurrence: US)
  Receive Date: 20160510
  Receipt Date: 20160707
  Transmission Date: 20161109
  Serious: Yes (Hospitalization)
  Sender: FDA-Public Use
  Company Number: US-WATSON-2016-09397

PATIENT
  Age: 9 Year
  Sex: Male
  Weight: 57.5 kg

DRUGS (8)
  1. DIPHENHYDRAMINE (WATSON LABORATORIES) [Suspect]
     Active Substance: DIPHENHYDRAMINE
     Indication: PRODUCT USED FOR UNKNOWN INDICATION
     Dosage: UNKNOWN
     Route: 065
  2. ACETAMINOPHEN. [Concomitant]
     Active Substance: ACETAMINOPHEN
     Indication: PRODUCT USED FOR UNKNOWN INDICATION
     Dosage: UNKNOWN
     Route: 065
  3. DILAUDID [Suspect]
     Active Substance: HYDROMORPHONE HYDROCHLORIDE
     Indication: ANALGESIC INTERVENTION SUPPORTIVE THERAPY
     Dosage: UNKNOWN
     Route: 051
     Dates: end: 20160331
  4. CETIRIZINE [Concomitant]
     Active Substance: CETIRIZINE HYDROCHLORIDE
     Indication: PRODUCT USED FOR UNKNOWN INDICATION
     Dosage: UNKNOWN
     Route: 065
  5. ONDANSETRON [Concomitant]
     Active Substance: ONDANSETRON
     Indication: PRODUCT USED FOR UNKNOWN INDICATION
     Dosage: UNKNOWN
     Route: 065
  6. GABAPENTIN (AELLC) [Suspect]
     Active Substance: GABAPENTIN
     Indication: PRODUCT USED FOR UNKNOWN INDICATION
     Dosage: UNKNOWN
     Route: 065
  7. LEUKINE [Suspect]
     Active Substance: SARGRAMOSTIM
     Indication: OSTEOSARCOMA RECURRENT
     Dosage: 2645 ?G, UNKNOWN
     Route: 065
     Dates: start: 20160325, end: 20160331
  8. GM-CSF [Suspect]
     Active Substance: GRANULOCYTE-MACROPHAGE COLONY-STIMULATING FACTOR
     Indication: OSTEOSARCOMA RECURRENT
     Dosage: 2645 ?G, UNKNOWN
     Route: 065
     Dates: start: 20160325, end: 20160331

REACTIONS (5)
  - Hypersensitivity [Recovered/Resolved]
  - Photophobia [Not Recovered/Not Resolved]
  - Pupillary reflex impaired [Not Recovered/Not Resolved]
  - Hallucination [Recovered/Resolved]
  - Mydriasis [Not Recovered/Not Resolved]

NARRATIVE: CASE EVENT DATE: 20160329
